FAERS Safety Report 21539820 (Version 3)
Quarter: 2022Q4

REPORT INFORMATION
  Report Type: Report from Study
  Country: US (occurrence: US)
  Receive Date: 20221102
  Receipt Date: 20221215
  Transmission Date: 20230113
  Serious: No
  Sender: FDA-Public Use
  Company Number: US-NOVARTISTESTPH-NVSC2022US243177

PATIENT
  Sex: Female

DRUGS (2)
  1. COSENTYX [Suspect]
     Active Substance: SECUKINUMAB
     Indication: Psoriasis
     Dosage: 300 MG, QMO (EVERY 4 WEEKS)
     Route: 065
     Dates: start: 20210309
  2. OTEZLA [Suspect]
     Active Substance: APREMILAST
     Indication: Psoriasis
     Dosage: UNK
     Route: 065

REACTIONS (12)
  - Sinus congestion [Unknown]
  - Paranasal sinus discomfort [Unknown]
  - Neoplasm skin [Unknown]
  - Hypertension [Unknown]
  - Eye disorder [Unknown]
  - COVID-19 [Unknown]
  - Arthralgia [Unknown]
  - Nail disorder [Unknown]
  - Psoriasis [Recovering/Resolving]
  - Pruritus [Unknown]
  - Papule [Unknown]
  - Scab [Unknown]
